FAERS Safety Report 9924908 (Version 1)
Quarter: 2014Q1

REPORT INFORMATION
  Report Type: Spontaneous
  Country: FR (occurrence: FR)
  Receive Date: 20140226
  Receipt Date: 20140226
  Transmission Date: 20141002
  Serious: Yes (Other)
  Sender: FDA-Public Use
  Company Number: FR-009507513-1402FRA007872

PATIENT
  Age: 83 Year
  Sex: Male

DRUGS (10)
  1. NORSET [Suspect]
     Dosage: 2 DF, QD
     Route: 048
     Dates: start: 20140103
  2. SERESTA [Concomitant]
     Dosage: 1 DF, QD
     Route: 048
  3. IMOVANE [Concomitant]
     Dosage: 1 DF, QD
     Route: 048
  4. AVODART [Concomitant]
     Dosage: 1 DF, QD
     Route: 048
     Dates: start: 201401
  5. BISOPROLOL [Concomitant]
     Dosage: 1.25 MG, QD
     Route: 048
  6. INEXIUM [Concomitant]
     Dosage: 1 DF, QD
     Route: 048
  7. KARDEGIC [Concomitant]
     Dosage: 1 DF, QD
     Route: 048
  8. PLAVIX [Concomitant]
     Dosage: 1 DF, QD
     Route: 048
     Dates: start: 201401
  9. LEVOTHYROX [Concomitant]
     Dosage: 1 DF, QD
     Route: 048
  10. PROCORALAN [Concomitant]
     Dosage: 1 DF, QD
     Route: 048
     Dates: start: 201401

REACTIONS (1)
  - Cardiac failure [Recovered/Resolved]
